FAERS Safety Report 5136010-9 (Version None)
Quarter: 2006Q4

REPORT INFORMATION
  Report Type: 
  Country: None (occurrence: None)
  Receive Date: 20061020
  Receipt Date: 20061010
  Transmission Date: 20070319
  Serious: Yes (Death, Life-Threatening)
  Sender: FDA-Public Use
  Company Number: 2006090583

PATIENT
  Age: 71 Year
  Sex: Male

DRUGS (4)
  1. ZYVOX [Suspect]
     Indication: STAPHYLOCOCCAL INFECTION
     Dosage: 600 MG (600 MG,1 IN 1 D), INTRAVENOUS
     Route: 042
     Dates: start: 20060704, end: 20060713
  2. RINGER'S [Concomitant]
  3. ASPARTATE POTASSIUM [Concomitant]
  4. ALL OTHER THERAPEUTIC PRODUCTS [Concomitant]

REACTIONS (2)
  - ACUTE MYOCARDIAL INFARCTION [None]
  - LABORATORY TEST ABNORMAL [None]
